FAERS Safety Report 11322551 (Version 1)
Quarter: 2015Q3

REPORT INFORMATION
  Report Type: Spontaneous
  Country: TW (occurrence: TW)
  Receive Date: 20150730
  Receipt Date: 20150730
  Transmission Date: 20151125
  Serious: Yes (Other)
  Sender: FDA-Public Use
  Company Number: TW-AMGEN-TWNSP2015075258

PATIENT
  Age: 82 Year
  Sex: Female

DRUGS (1)
  1. ENBREL [Suspect]
     Active Substance: ETANERCEPT
     Indication: RHEUMATOID ARTHRITIS
     Dosage: 50 MG, WEEKLY
     Route: 058
     Dates: start: 201412

REACTIONS (8)
  - C-reactive protein increased [Unknown]
  - Decreased appetite [Recovering/Resolving]
  - Red blood cell sedimentation rate increased [Unknown]
  - Productive cough [Recovered/Resolved]
  - Pneumonia [Unknown]
  - Abdominal discomfort [Unknown]
  - Gastrooesophageal reflux disease [Unknown]
  - Gastric ulcer [Unknown]

NARRATIVE: CASE EVENT DATE: 201506
